FAERS Safety Report 15879586 (Version 1)
Quarter: 2019Q1

REPORT INFORMATION
  Report Type: Spontaneous
  Country: DE (occurrence: DE)
  Receive Date: 20190128
  Receipt Date: 20190128
  Transmission Date: 20190417
  Serious: Yes (Other)
  Sender: FDA-Public Use
  Company Number: DE-ELI_LILLY_AND_COMPANY-DE201901008629

PATIENT
  Age: 65 Year
  Sex: Female

DRUGS (1)
  1. CYRAMZA [Suspect]
     Active Substance: RAMUCIRUMAB
     Indication: PRODUCT USED FOR UNKNOWN INDICATION
     Dosage: 1 DF, 2/M
     Route: 065
     Dates: start: 20180730, end: 20181205

REACTIONS (2)
  - Periodontal disease [Unknown]
  - Haemangioma [Unknown]

NARRATIVE: CASE EVENT DATE: 20181108
